FAERS Safety Report 21969895 (Version 3)
Quarter: 2023Q2

REPORT INFORMATION
  Report Type: Report from Study
  Country: US (occurrence: US)
  Receive Date: 20230208
  Receipt Date: 20230522
  Transmission Date: 20230722
  Serious: No
  Sender: FDA-Public Use
  Company Number: US-BIOGEN-2023BI01186368

PATIENT
  Sex: Female

DRUGS (1)
  1. TECFIDERA [Suspect]
     Active Substance: DIMETHYL FUMARATE
     Indication: Multiple sclerosis
     Route: 050

REACTIONS (3)
  - Chronic kidney disease [Unknown]
  - Cardiac disorder [Unknown]
  - Blood iron decreased [Unknown]
